FAERS Safety Report 5996911-6 (Version None)
Quarter: 2008Q4

REPORT INFORMATION
  Report Type: 
  Country: None (occurrence: None)
  Receive Date: 20081212
  Receipt Date: 20081029
  Transmission Date: 20090506
  Serious: No
  Sender: FDA-Public Use
  Company Number: US-ABBOTT-08P-163-0484494-00

PATIENT
  Sex: Female

DRUGS (9)
  1. HUMIRA [Suspect]
     Indication: RHEUMATOID ARTHRITIS
     Route: 058
     Dates: start: 20080201, end: 20080901
  2. HUMIRA [Suspect]
     Indication: CROHN'S DISEASE
     Route: 058
     Dates: start: 20080901
  3. METHOTREXATE [Concomitant]
     Indication: CROHN'S DISEASE
     Route: 050
  4. HYDROXYCHLOROQUINE SULFATE [Concomitant]
     Indication: SYSTEMIC LUPUS ERYTHEMATOSUS
  5. SERTRALINE [Concomitant]
     Indication: DRUG USE FOR UNKNOWN INDICATION
  6. BUSPIRONE HCL [Concomitant]
     Indication: DRUG USE FOR UNKNOWN INDICATION
  7. FOLIC ACID [Concomitant]
     Indication: DRUG USE FOR UNKNOWN INDICATION
     Route: 048
  8. VICODIN [Concomitant]
     Indication: PAIN
     Route: 048
  9. MONTELUKAST SODIUM [Concomitant]
     Indication: ASTHMA

REACTIONS (7)
  - ACNE [None]
  - DERMATITIS [None]
  - DRUG INEFFECTIVE [None]
  - INJECTION SITE IRRITATION [None]
  - INJECTION SITE PAIN [None]
  - OEDEMA PERIPHERAL [None]
  - STASIS DERMATITIS [None]
